FAERS Safety Report 15825878 (Version 2)
Quarter: 2019Q1

REPORT INFORMATION
  Report Type: Report from Study
  Country: NL (occurrence: NL)
  Receive Date: 20190115
  Receipt Date: 20190204
  Transmission Date: 20190417
  Serious: Yes (Death, Hospitalization)
  Sender: FDA-Public Use
  Company Number: NL-PFIZER INC-2019017015

PATIENT
  Age: 52 Year
  Sex: Female

DRUGS (5)
  1. BEVACIZUMAB. [Suspect]
     Active Substance: BEVACIZUMAB
     Indication: NON-SMALL CELL LUNG CANCER
     Dosage: DATE OF MOST RECENT DOSE OF BEVACIZUMAB PRIOR TO SAE ONSET: 16/NOV/2018.
     Route: 065
     Dates: start: 20180907, end: 20181116
  2. PACLITAXEL. [Suspect]
     Active Substance: PACLITAXEL
     Indication: NON-SMALL CELL LUNG CANCER
     Dosage: DATE OF MOST RECENT DOSE OF PACLITAXEL PRIOR TO SAE ONSET: 26/OCT/2018.
     Route: 065
     Dates: start: 20180907, end: 20181026
  3. CLOPIDOGREL [Concomitant]
     Active Substance: CLOPIDOGREL BISULFATE
     Dosage: UNK
     Route: 065
     Dates: start: 20180717
  4. NADROPARINE [Concomitant]
     Active Substance: NADROPARIN
     Dosage: 15200 IU, UNK
     Route: 065
     Dates: start: 20180717
  5. CARBOPLATIN. [Suspect]
     Active Substance: CARBOPLATIN
     Indication: NON-SMALL CELL LUNG CANCER
     Dosage: DATE OF MOST RECENT DOSE OF CARBOPLATIN PRIOR TO SAE ONSET: 26/OCT/2018.
     Route: 065
     Dates: start: 20180907, end: 20181026

REACTIONS (2)
  - Dyspnoea [Fatal]
  - Pulmonary embolism [Fatal]

NARRATIVE: CASE EVENT DATE: 20181206
